FAERS Safety Report 6630436-X (Version None)
Quarter: 2010Q1

REPORT INFORMATION
  Report Type: 
  Country: None (occurrence: None)
  Receive Date: 20100311
  Receipt Date: 20090622
  Transmission Date: 20100710
  Serious: No
  Sender: FDA-Public Use
  Company Number: US-BIOGENIDEC-2009BI019020

PATIENT
  Age: 22 Year
  Sex: Male

DRUGS (2)
  1. AVONEX [Suspect]
     Indication: MULTIPLE SCLEROSIS
     Route: 030
     Dates: start: 20090509
  2. UNKNOWN ANTIDEPRESSANT [Concomitant]
     Indication: DEPRESSION
     Dates: start: 20070101

REACTIONS (7)
  - ANXIETY [None]
  - DEPRESSION [None]
  - DYSGRAPHIA [None]
  - DYSKINESIA [None]
  - GENERAL PHYSICAL HEALTH DETERIORATION [None]
  - INFLUENZA LIKE ILLNESS [None]
  - PARALYSIS [None]
